FAERS Safety Report 23816923 (Version 2)
Quarter: 2024Q4

REPORT INFORMATION
  Report Type: Spontaneous
  Country: US (occurrence: US)
  Receive Date: 20240504
  Receipt Date: 20241001
  Transmission Date: 20250114
  Serious: No
  Sender: NOVARTIS
  Company Number: US-002147023-NVSC2024US094122

PATIENT
  Age: 71 Year
  Sex: Male
  Weight: 92.9 kg

DRUGS (1)
  1. LEQVIO [Suspect]
     Active Substance: INCLISIRAN SODIUM
     Indication: Hyperlipidaemia
     Dosage: 284 MG, OTHER (ONE INJECTION, THREE MONTH INJECTION AND ONCE EVERY SIX MONTHS)
     Route: 058
     Dates: start: 20240205

REACTIONS (4)
  - Myalgia [Recovering/Resolving]
  - Low density lipoprotein increased [Unknown]
  - Blood cholesterol increased [Unknown]
  - Weight increased [Unknown]

NARRATIVE: CASE EVENT DATE: 20240205
